FAERS Safety Report 14987876 (Version 2)
Quarter: 2018Q2

REPORT INFORMATION
  Report Type: Spontaneous
  Country: GB (occurrence: GB)
  Receive Date: 20180608
  Receipt Date: 20180625
  Transmission Date: 20180711
  Serious: Yes (Other)
  Sender: FDA-Public Use
  Company Number: GB-MYLANLABS-2016M1039237

PATIENT
  Age: 21 Year
  Sex: Female

DRUGS (3)
  1. CLOZARIL [Suspect]
     Active Substance: CLOZAPINE
     Indication: SCHIZOPHRENIA
     Dosage: UNK
     Route: 048
     Dates: start: 201806
  2. CLOZARIL [Suspect]
     Active Substance: CLOZAPINE
     Dosage: UNK
     Route: 048
     Dates: start: 20180606
  3. CLOZARIL [Suspect]
     Active Substance: CLOZAPINE
     Indication: BORDERLINE PERSONALITY DISORDER
     Dosage: UNK
     Route: 048
     Dates: start: 20141103

REACTIONS (3)
  - Platelet count decreased [Recovered/Resolved]
  - Product use in unapproved indication [Unknown]
  - Differential white blood cell count abnormal [Unknown]

NARRATIVE: CASE EVENT DATE: 20160830
